FAERS Safety Report 15994416 (Version 1)
Quarter: 2019Q1

REPORT INFORMATION
  Report Type: Spontaneous
  Country: US (occurrence: US)
  Receive Date: 20190222
  Receipt Date: 20190222
  Transmission Date: 20190418
  Serious: No
  Sender: FDA-Public Use
  Company Number: US-BIOGEN-2019BI00684369

PATIENT
  Sex: Female

DRUGS (2)
  1. TYSABRI [Suspect]
     Active Substance: NATALIZUMAB
     Indication: MULTIPLE SCLEROSIS
     Dosage: INFUSED OVER 1 HR
     Route: 042
  2. TYSABRI [Suspect]
     Active Substance: NATALIZUMAB
     Route: 048
     Dates: start: 20170613, end: 20171031

REACTIONS (6)
  - Burning sensation [Unknown]
  - Malaise [Unknown]
  - Hypersensitivity [Unknown]
  - Urticaria [Unknown]
  - Amnesia [Unknown]
  - Flushing [Unknown]
